FAERS Safety Report 7961938-1 (Version None)
Quarter: 2011Q4

REPORT INFORMATION
  Report Type: 
  Country: None (occurrence: None)
  Receive Date: 20111207
  Receipt Date: 20111201
  Transmission Date: 20120403
  Serious: Yes (Death, Other)
  Sender: FDA-Public Use
  Company Number: US-ELI_LILLY_AND_COMPANY-US201108003276

PATIENT
  Sex: Male

DRUGS (4)
  1. HEPARIN [Concomitant]
     Dosage: UNK, UNKNOWN
     Route: 065
  2. EFFIENT [Suspect]
     Dosage: 10 MG, QD
     Route: 065
  3. EFFIENT [Suspect]
     Dosage: 20 MG, UNK
  4. EFFIENT [Suspect]
     Dosage: 60 MG, LOADING DOSE

REACTIONS (3)
  - ACUTE MYOCARDIAL INFARCTION [None]
  - DRUG INEFFECTIVE [None]
  - DEATH [None]
